FAERS Safety Report 25575359 (Version 2)
Quarter: 2025Q3

REPORT INFORMATION
  Report Type: Report from Study
  Country: EU (occurrence: EU)
  Receive Date: 20250718
  Receipt Date: 20250729
  Transmission Date: 20251021
  Serious: Yes (Hospitalization, Other)
  Sender: AUROBINDO
  Company Number: EU-PFM-2024-02742

PATIENT
  Age: 59 Year
  Sex: Female

DRUGS (10)
  1. DOCETAXEL [Suspect]
     Active Substance: DOCETAXEL
     Indication: Invasive ductal breast carcinoma
     Route: 065
  2. DOCETAXEL [Suspect]
     Active Substance: DOCETAXEL
     Route: 065
  3. DOCETAXEL [Suspect]
     Active Substance: DOCETAXEL
     Route: 065
  4. VINORELBINE [Suspect]
     Active Substance: VINORELBINE TARTRATE
     Indication: Invasive ductal breast carcinoma
     Route: 065
  5. VINORELBINE [Suspect]
     Active Substance: VINORELBINE TARTRATE
     Route: 065
  6. TAMOXIFEN [Suspect]
     Active Substance: TAMOXIFEN
     Indication: Invasive ductal breast carcinoma
     Route: 065
  7. TRASTUZUMAB [Concomitant]
     Active Substance: TRASTUZUMAB
     Indication: Invasive ductal breast carcinoma
     Route: 065
  8. TRASTUZUMAB [Concomitant]
     Active Substance: TRASTUZUMAB
     Route: 065
  9. TRASTUZUMAB [Concomitant]
     Active Substance: TRASTUZUMAB
     Route: 065
  10. TRASTUZUMAB [Concomitant]
     Active Substance: TRASTUZUMAB
     Route: 065

REACTIONS (6)
  - Disease progression [Unknown]
  - Drug ineffective [Unknown]
  - Thrombocytopenia [Unknown]
  - Pleural effusion [Unknown]
  - Metastases to lung [Unknown]
  - Malignant neoplasm progression [Unknown]
